FAERS Safety Report 7000918-X (Version None)
Quarter: 2010Q3

REPORT INFORMATION
  Report Type: 
  Country: None (occurrence: None)
  Receive Date: 20100902
  Receipt Date: 20100304
  Transmission Date: 20110219
  Serious: Yes (Hospitalization, Disabling, Other)
  Sender: FDA-Public Use
  Company Number: 226649USA

PATIENT
  Sex: Female

DRUGS (2)
  1. METOCLOPRAMIDE [Suspect]
     Indication: GASTROOESOPHAGEAL REFLUX DISEASE
     Dosage: 30 MG (10 MG,3 IN 1 D),ORAL
     Route: 048
     Dates: start: 20061101, end: 20080201
  2. METOCLOPRAMIDE [Suspect]
     Indication: PEPTIC ULCER
     Dosage: 30 MG (10 MG,3 IN 1 D),ORAL
     Route: 048
     Dates: start: 20061101, end: 20080201

REACTIONS (13)
  - DEFORMITY [None]
  - DEPRESSION [None]
  - DYSPNOEA [None]
  - GRIMACING [None]
  - HUNGER [None]
  - LIP DISORDER [None]
  - MASTICATION DISORDER [None]
  - MUSCLE SPASTICITY [None]
  - PAIN [None]
  - PROTRUSION TONGUE [None]
  - TARDIVE DYSKINESIA [None]
  - TREMOR [None]
  - WEIGHT DECREASED [None]
